FAERS Safety Report 7732250-0 (Version None)
Quarter: 2011Q3

REPORT INFORMATION
  Report Type: 
  Country: None (occurrence: None)
  Receive Date: 20110906
  Receipt Date: 20110817
  Transmission Date: 20111222
  Serious: No
  Sender: FDA-Public Use
  Company Number: US-AMGEN-USASP2011032072

PATIENT
  Age: 60 Year
  Sex: Female

DRUGS (6)
  1. PROLIA [Suspect]
     Indication: OSTEOPOROSIS POSTMENOPAUSAL
     Dosage: 60 MG, Q6MO
     Dates: start: 20101201
  2. VITAMIN C                          /00008001/ [Concomitant]
  3. CALCIUM WITH VITAMIN D             /00944201/ [Concomitant]
     Dosage: UNK
  4. OMEGA 3                            /00931501/ [Concomitant]
  5. ASPIRIN [Concomitant]
     Dosage: 1 MG, UNK
  6. SYNTHROID [Concomitant]
     Dosage: 1 MUG/KG, UNK

REACTIONS (5)
  - LOCAL SWELLING [None]
  - RASH [None]
  - BLOOD CHOLESTEROL INCREASED [None]
  - PRURITUS GENERALISED [None]
  - ARTHROPOD BITE [None]
